FAERS Safety Report 7244173-4 (Version None)
Quarter: 2011Q1

REPORT INFORMATION
  Report Type: 
  Country: None (occurrence: None)
  Receive Date: 20110125
  Receipt Date: 20110112
  Transmission Date: 20110831
  Serious: Yes (Death, Hospitalization)
  Sender: FDA-Public Use
  Company Number: ES-MYLANLABS-2011S1000881

PATIENT
  Age: 52 Year
  Sex: Male

DRUGS (6)
  1. COLCHICINE [Interacting]
     Indication: GOUT
     Route: 065
  2. COLCHICINE [Interacting]
     Indication: HYPERURICAEMIA
     Route: 065
  3. COLCHICINE [Interacting]
     Route: 065
  4. ALLOPURINOL [Concomitant]
     Indication: HYPERURICAEMIA
     Route: 065
  5. CLARITHROMYCIN [Suspect]
     Indication: TOOTH ABSCESS
     Route: 065
  6. COLCHICINE [Interacting]
     Route: 065

REACTIONS (8)
  - THROMBOCYTOPENIA [None]
  - DRUG INTERACTION [None]
  - ACUTE RESPIRATORY DISTRESS SYNDROME [None]
  - RENAL FAILURE [None]
  - HEPATITIS TOXIC [None]
  - LACTIC ACIDOSIS [None]
  - MULTI-ORGAN FAILURE [None]
  - NEUTROPENIA [None]
